FAERS Safety Report 8951629 (Version 2)
Quarter: 2013Q1

REPORT INFORMATION
  Report Type: Spontaneous
  Country: US (occurrence: US)
  Receive Date: 20121204
  Receipt Date: 20130109
  Transmission Date: 20140127
  Serious: Yes (Hospitalization, Other)
  Sender: FDA-Public Use
  Company Number: US-NOVOPROD-365463

PATIENT
  Age: 13 Year
  Sex: Male
  Weight: 28.1 kg

DRUGS (2)
  1. NORDITROPIN FLEXPRO [Suspect]
     Indication: GROWTH HORMONE DEFICIENCY
     Dosage: 1 MG, QD
     Route: 058
     Dates: start: 2011, end: 2011
  2. NORDITROPIN FLEXPRO [Suspect]
     Dosage: 1.3 MG, QD
     Route: 058
     Dates: end: 20121113

REACTIONS (1)
  - Glioblastoma multiforme [Not Recovered/Not Resolved]
